FAERS Safety Report 20175662 (Version 1)
Quarter: 2021Q4

REPORT INFORMATION
  Report Type: Other
  Country: US (occurrence: None)
  Receive Date: 20211213
  Receipt Date: 20211213
  Transmission Date: 20220303
  Serious: Yes (Disabling, Other)
  Sender: FDA-Public Use
  Company Number: US-ROCHE-2973372

PATIENT
  Sex: Female
  Weight: 79.904 kg

DRUGS (16)
  1. OCREVUS [Suspect]
     Active Substance: OCRELIZUMAB
     Indication: Multiple sclerosis relapse
     Route: 042
     Dates: start: 2018
  2. VITAMIN C [Concomitant]
     Active Substance: ASCORBIC ACID
     Dosage: ONGOING YES
     Route: 048
     Dates: start: 2010
  3. GABAPENTIN [Concomitant]
     Active Substance: GABAPENTIN
     Dosage: ONGOING YES
     Route: 048
     Dates: start: 2015
  4. CYMBALTA [Concomitant]
     Active Substance: DULOXETINE HYDROCHLORIDE
     Dosage: ONGOING: YES
     Route: 048
     Dates: start: 201906
  5. BUTALBITAL, ACETAMINOPHEN, AND CAFFEINE [Concomitant]
     Active Substance: ACETAMINOPHEN\BUTALBITAL\CAFFEINE
  6. TROKENDI XR [Concomitant]
     Active Substance: TOPIRAMATE
  7. NAPROXEN [Concomitant]
     Active Substance: NAPROXEN
     Route: 048
  8. AMANTADINE HYDROCHLORIDE [Concomitant]
     Active Substance: AMANTADINE HYDROCHLORIDE
  9. BACLOFEN [Concomitant]
     Active Substance: BACLOFEN
  10. QVAR [Concomitant]
     Active Substance: BECLOMETHASONE DIPROPIONATE
  11. PRAZOSIN [Concomitant]
     Active Substance: PRAZOSIN
  12. HYDROCHLOROTHIAZIDE [Concomitant]
     Active Substance: HYDROCHLOROTHIAZIDE
  13. VITAMIN D3 [Concomitant]
     Active Substance: CHOLECALCIFEROL
  14. VALIUM [Concomitant]
     Active Substance: DIAZEPAM
     Route: 048
  15. MAXALT [Concomitant]
     Active Substance: RIZATRIPTAN BENZOATE
  16. FIORICET [Concomitant]
     Active Substance: ACETAMINOPHEN\BUTALBITAL\CAFFEINE

REACTIONS (17)
  - Demyelination [Unknown]
  - Blindness [Unknown]
  - Brain compression [Unknown]
  - Pulmonary hypertension [Unknown]
  - Peripheral nerve lesion [Unknown]
  - Back pain [Unknown]
  - Hyperglycaemia [Unknown]
  - Occipital neuralgia [Unknown]
  - Intervertebral disc disorder [Unknown]
  - Spinal osteoarthritis [Unknown]
  - Sacroiliitis [Unknown]
  - Asthma [Unknown]
  - Migraine [Unknown]
  - Vitamin D deficiency [Unknown]
  - Tinnitus [Unknown]
  - Gastrooesophageal reflux disease [Unknown]
  - Carpal tunnel syndrome [Unknown]
